FAERS Safety Report 6435697-8 (Version None)
Quarter: 2009Q4

REPORT INFORMATION
  Report Type: 
  Country: None (occurrence: None)
  Receive Date: 20091111
  Receipt Date: 20091109
  Transmission Date: 20100525
  Serious: Yes (Death)
  Sender: FDA-Public Use
  Company Number: PHEH2009US14327

PATIENT

DRUGS (1)
  1. EXJADE [Suspect]
     Dosage: 1500 MG, DAILY
     Dates: start: 20090310

REACTIONS (1)
  - CARDIAC DISORDER [None]
